FAERS Safety Report 6418193-3 (Version None)
Quarter: 2009Q4

REPORT INFORMATION
  Report Type: 
  Country: None (occurrence: None)
  Receive Date: 20091028
  Receipt Date: 20091019
  Transmission Date: 20100525
  Serious: Yes (Hospitalization)
  Sender: FDA-Public Use
  Company Number: US-ASTRAZENECA-2009SE21391

PATIENT
  Age: 80 Year
  Sex: Female
  Weight: 50.2 kg

DRUGS (7)
  1. ARIMIDEX [Suspect]
     Indication: BREAST CANCER
     Route: 048
     Dates: start: 20070206
  2. OXINORM [Suspect]
     Indication: BACK PAIN
  3. AMLODIPINE BESYLATE [Concomitant]
  4. METHYCOBAL [Concomitant]
  5. MUCOSTA [Concomitant]
  6. LOXOPROFEN SODIUM [Concomitant]
     Dates: start: 20080916, end: 20091001
  7. GOSHAJINKIGAN [Concomitant]
     Dates: start: 20081002, end: 20091001

REACTIONS (1)
  - RENAL FAILURE ACUTE [None]
